FAERS Safety Report 5630109-6 (Version None)
Quarter: 2008Q1

REPORT INFORMATION
  Report Type: 
  Country: None (occurrence: None)
  Receive Date: 20080218
  Receipt Date: 20080205
  Transmission Date: 20080703
  Serious: Yes (Other)
  Sender: FDA-Public Use
  Company Number: PHMT2008CA00504

PATIENT
  Age: 84 Year
  Sex: Female

DRUGS (1)
  1. LESCOL XL [Suspect]
     Indication: BLOOD CHOLESTEROL INCREASED
     Dosage: 80 MG, QD
     Route: 048
     Dates: start: 20040101

REACTIONS (1)
  - CREATININE RENAL CLEARANCE DECREASED [None]
